FAERS Safety Report 6997986-8 (Version None)
Quarter: 2010Q3

REPORT INFORMATION
  Report Type: 
  Country: None (occurrence: None)
  Receive Date: 20100920
  Receipt Date: 20100629
  Transmission Date: 20110219
  Serious: No
  Sender: FDA-Public Use
  Company Number: US-ASTRAZENECA-2007UW12305

PATIENT
  Age: 53 Year
  Sex: Female
  Weight: 100.2 kg

DRUGS (49)
  1. SEROQUEL [Suspect]
     Indication: BIPOLAR DISORDER
     Dosage: 50 MG-200 MG DAILY
     Route: 048
     Dates: start: 20030514, end: 20060214
  2. SEROQUEL [Suspect]
     Indication: SCHIZOAFFECTIVE DISORDER
     Dosage: 50 MG-200 MG DAILY
     Route: 048
     Dates: start: 20030514, end: 20060214
  3. SEROQUEL [Suspect]
     Indication: DEPRESSION
     Dosage: 50 MG-200 MG DAILY
     Route: 048
     Dates: start: 20030514, end: 20060214
  4. SEROQUEL [Suspect]
     Indication: ANXIETY
     Dosage: 50 MG-200 MG DAILY
     Route: 048
     Dates: start: 20030514, end: 20060214
  5. SEROQUEL [Suspect]
     Dosage: 25 MG TO 300 MG
     Route: 048
     Dates: start: 20030516
  6. SEROQUEL [Suspect]
     Dosage: 25 MG TO 300 MG
     Route: 048
     Dates: start: 20030516
  7. SEROQUEL [Suspect]
     Dosage: 25 MG TO 300 MG
     Route: 048
     Dates: start: 20030516
  8. SEROQUEL [Suspect]
     Dosage: 25 MG TO 300 MG
     Route: 048
     Dates: start: 20030516
  9. SEROQUEL [Suspect]
     Route: 048
     Dates: start: 20040516
  10. SEROQUEL [Suspect]
     Route: 048
     Dates: start: 20040516
  11. SEROQUEL [Suspect]
     Route: 048
     Dates: start: 20040516
  12. SEROQUEL [Suspect]
     Route: 048
     Dates: start: 20040516
  13. SEROQUEL [Suspect]
     Dosage: 75 MG - 350 MG DAILY
     Route: 048
     Dates: start: 20060803
  14. SEROQUEL [Suspect]
     Dosage: 75 MG - 350 MG DAILY
     Route: 048
     Dates: start: 20060803
  15. SEROQUEL [Suspect]
     Dosage: 75 MG - 350 MG DAILY
     Route: 048
     Dates: start: 20060803
  16. SEROQUEL [Suspect]
     Dosage: 75 MG - 350 MG DAILY
     Route: 048
     Dates: start: 20060803
  17. RISPERDAL [Concomitant]
     Indication: SCHIZOAFFECTIVE DISORDER
     Dates: start: 19900101, end: 20010101
  18. RISPERDAL [Concomitant]
     Indication: BIPOLAR DISORDER
     Dates: start: 19900101, end: 20010101
  19. RISPERDAL [Concomitant]
     Indication: DEPRESSION
     Dates: start: 19900101, end: 20010101
  20. RISPERDAL [Concomitant]
     Indication: ANXIETY
     Dates: start: 19900101, end: 20010101
  21. RISPERDAL [Concomitant]
     Dates: start: 19960101, end: 19960101
  22. RISPERDAL [Concomitant]
     Dates: start: 19960101, end: 19960101
  23. RISPERDAL [Concomitant]
     Dates: start: 19960101, end: 19960101
  24. RISPERDAL [Concomitant]
     Dates: start: 19960101, end: 19960101
  25. KLONOPIN [Concomitant]
     Route: 048
     Dates: start: 20051214
  26. KLONOPIN [Concomitant]
     Dates: start: 20050101, end: 20070101
  27. LEXAPRO [Concomitant]
     Dosage: 10 MG - 20 MG DAILY
     Route: 048
     Dates: start: 20051214, end: 20070101
  28. GEODON [Concomitant]
     Route: 048
     Dates: start: 20051214
  29. LESCOL XL [Concomitant]
     Route: 048
     Dates: start: 20050512
  30. NORVASC [Concomitant]
     Route: 048
     Dates: start: 20030501
  31. TORSEMIDE [Concomitant]
     Route: 048
     Dates: start: 20050926
  32. MICARDIS [Concomitant]
     Route: 048
     Dates: start: 20041007
  33. CRESTOR [Concomitant]
     Indication: OBESITY
     Route: 048
     Dates: start: 20031002
  34. ADVAIR DISKUS 100/50 [Concomitant]
     Dosage: STRENGTH  250/50 MCG
     Route: 045
     Dates: start: 20061213
  35. XOPENEX [Concomitant]
     Route: 048
     Dates: start: 20061213
  36. CYCLOBENZAPRINE [Concomitant]
     Route: 048
     Dates: start: 20070416
  37. DOXYCYCLINE HYCLATE [Concomitant]
     Route: 048
     Dates: start: 20050915
  38. ALBUTEROL [Concomitant]
     Route: 045
     Dates: start: 20050425
  39. SINGULAIR [Concomitant]
     Route: 048
     Dates: start: 20050425
  40. GABAPENTIN [Concomitant]
     Route: 048
     Dates: start: 20060115
  41. AVANDAMET [Concomitant]
     Dosage: STRENGTH 500 MG/2 MG
     Route: 048
     Dates: start: 20040807
  42. PAROXETINE HCL [Concomitant]
     Route: 048
     Dates: start: 19900101, end: 20030101
  43. PAROXETINE HCL [Concomitant]
     Route: 048
     Dates: start: 20030826
  44. DIOVAN [Concomitant]
     Route: 048
     Dates: start: 20030813
  45. NEXIUM [Concomitant]
     Route: 048
     Dates: start: 20031004
  46. AMBIEN [Concomitant]
     Dosage: 5MG-10MG AT NIGHT
     Route: 048
     Dates: start: 20050623
  47. HALDOL [Concomitant]
  48. THORAZINE [Concomitant]
  49. ZOLOFT [Concomitant]
     Dates: start: 19900101

REACTIONS (3)
  - INFLUENZA [None]
  - OBESITY [None]
  - TYPE 2 DIABETES MELLITUS [None]
